FAERS Safety Report 5009624-4 (Version None)
Quarter: 2006Q3

REPORT INFORMATION
  Report Type: 
  Country: None (occurrence: None)
  Receive Date: 20060524
  Receipt Date: 20060111
  Transmission Date: 20061208
  Serious: Yes (Hospitalization)
  Sender: FDA-Public Use
  Company Number: US-AMGEN-US164399

PATIENT
  Sex: Male

DRUGS (6)
  1. PANITUMUMAB - OBSERVATION/NO DRUG [Suspect]
     Indication: COLORECTAL CANCER
  2. NEULASTA [Suspect]
     Indication: CHEMOTHERAPY
     Route: 065
  3. AVASTIN [Concomitant]
     Route: 065
  4. OXALIPLATIN [Concomitant]
     Route: 042
  5. FLUOROURACIL [Concomitant]
     Route: 042
  6. FOLINIC ACID [Concomitant]
     Route: 042

REACTIONS (2)
  - BACK PAIN [None]
  - NON-CARDIAC CHEST PAIN [None]
